FAERS Safety Report 9843907 (Version 1)
Quarter: 2013Q4

REPORT INFORMATION
  Report Type: Spontaneous
  Country: US (occurrence: None)
  Receive Date: 20131223
  Receipt Date: 20131223
  Transmission Date: 20140711
  Serious: No
  Sender: FDA-Public Use
  Company Number: 1000049029

PATIENT
  Age: 74 Year
  Sex: Male

DRUGS (6)
  1. LINZESS [Suspect]
     Indication: IRRITABLE BOWEL SYNDROME
     Route: 048
     Dates: start: 201308, end: 201308
  2. WARFARIN (WARFARIN) (WARFARIN) [Concomitant]
  3. DIGITEK (DIGOXIN) (DIGOXIN) [Concomitant]
  4. METOPROLOL (METOLPROLOL) (METOPROLOL) [Concomitant]
  5. HYDROCHLOROTHIAZIDE (HYDROCHLOROTHIAZIDE) (HYDROCHLOROTHIAZIDE) [Concomitant]
  6. ATORVASTATIN (ATORVASTATIN) (ATORVASTATIN) [Concomitant]

REACTIONS (1)
  - Diarrhoea [None]
